FAERS Safety Report 4602958-4 (Version None)
Quarter: 2005Q1

REPORT INFORMATION
  Report Type: 
  Country: None (occurrence: None)
  Receive Date: 20050307
  Receipt Date: 20050218
  Transmission Date: 20050727
  Serious: Yes (Hospitalization)
  Sender: FDA-Public Use
  Company Number: 2005SE01057

PATIENT
  Age: 68 Year
  Sex: Male

DRUGS (4)
  1. CRESTOR [Suspect]
     Indication: HYPERCHOLESTEROLAEMIA
     Dates: start: 20041018, end: 20041104
  2. SOLOSA [Concomitant]
  3. TICLOPIDINE HCL [Concomitant]
  4. MODURETIC 5-50 [Concomitant]

REACTIONS (1)
  - HEPATITIS CHOLESTATIC [None]
